FAERS Safety Report 6972883-2 (Version None)
Quarter: 2010Q3

REPORT INFORMATION
  Report Type: 
  Country: None (occurrence: None)
  Receive Date: 20100909
  Receipt Date: 20100630
  Transmission Date: 20110219
  Serious: No
  Sender: FDA-Public Use
  Company Number: US-KINGPHARMUSA00001-K201000836

PATIENT

DRUGS (2)
  1. EMBEDA [Suspect]
     Dosage: UNK
  2. BENZODIAZEPINE DERIVATIVES [Suspect]
     Dosage: UNK

REACTIONS (2)
  - HYPOAESTHESIA [None]
  - PARAESTHESIA [None]
